FAERS Safety Report 15264852 (Version 2)
Quarter: 2018Q4

REPORT INFORMATION
  Report Type: Spontaneous
  Country: US (occurrence: US)
  Receive Date: 20180810
  Receipt Date: 20181217
  Transmission Date: 20190204
  Serious: Yes (Other)
  Sender: FDA-Public Use
  Company Number: US-ASTELLAS-2018US036187

PATIENT
  Age: 31 Year
  Sex: Female

DRUGS (3)
  1. PREDNISONE. [Suspect]
     Active Substance: PREDNISONE
     Indication: LUNG TRANSPLANT
     Route: 065
  2. PROGRAF [Suspect]
     Active Substance: TACROLIMUS\TACROLIMUS ANHYDROUS
     Indication: LUNG TRANSPLANT
     Dosage: UNK UNK, UNKNOWN FREQ.
     Route: 065
  3. CELLCEPT [Suspect]
     Active Substance: MYCOPHENOLATE MOFETIL\MYCOPHENOLATE MOFETIL HYDROCHLORIDE
     Indication: LUNG TRANSPLANT
     Route: 065

REACTIONS (7)
  - Product use in unapproved indication [Unknown]
  - Staphylococcal infection [Unknown]
  - Tachycardia [Unknown]
  - Sinus congestion [Unknown]
  - Post transplant lymphoproliferative disorder [Recovered/Resolved]
  - Hypertension [Unknown]
  - Pseudomonas infection [Unknown]
